FAERS Safety Report 24230848 (Version 2)
Quarter: 2024Q3

REPORT INFORMATION
  Report Type: Spontaneous
  Country: GB (occurrence: GB)
  Receive Date: 20240821
  Receipt Date: 20240822
  Transmission Date: 20241017
  Serious: Yes (Other)
  Sender: AUROBINDO
  Company Number: GB-MHRA-EMIS-896-ae62b0d1-2663-46ed-9b51-c1efc141aee0

PATIENT
  Age: 65 Year
  Sex: Male
  Weight: 90 kg

DRUGS (4)
  1. DOXAZOSIN [Suspect]
     Active Substance: DOXAZOSIN MESYLATE
     Indication: Product used for unknown indication
     Dosage: ONE TO BE TAKEN EACH DAY
     Route: 065
     Dates: start: 20240701, end: 20240731
  2. DOXAZOSIN [Concomitant]
     Active Substance: DOXAZOSIN MESYLATE
     Indication: Essential hypertension
     Dosage: TAKE ONE TABLET EACH DAY FOR 2 WEEKS THEN MOVE UP TO THE 2MG TABLETS
     Route: 065
     Dates: start: 20240610, end: 20240709
  3. DOXAZOSIN [Concomitant]
     Active Substance: DOXAZOSIN MESYLATE
     Dosage: AFTER 2 WEEKS OF THE 1MG TABLETS TAKE ONE TABLET EVERY DAY
     Route: 065
     Dates: start: 20240710, end: 20240801
  4. INDAPAMIDE [Concomitant]
     Active Substance: INDAPAMIDE
     Indication: Essential hypertension
     Dosage: TAKE ONE TABLET EACH MORNING FOR BLOOD PRESSURE
     Route: 065
     Dates: start: 20240801

REACTIONS (1)
  - Mood swings [Recovering/Resolving]

NARRATIVE: CASE EVENT DATE: 20240703
